FAERS Safety Report 10926696 (Version 4)
Quarter: 2015Q2

REPORT INFORMATION
  Report Type: Spontaneous
  Country: US (occurrence: US)
  Receive Date: 20150318
  Receipt Date: 20150629
  Transmission Date: 20150821
  Serious: Yes (Hospitalization, Disabling, Other)
  Sender: FDA-Public Use
  Company Number: US-MERCK-1503USA008885

PATIENT
  Sex: Male
  Weight: 77.98 kg

DRUGS (1)
  1. JANUVIA [Suspect]
     Active Substance: SITAGLIPTIN PHOSPHATE
     Indication: TYPE 2 DIABETES MELLITUS
     Dosage: 100 MG, BID
     Route: 048
     Dates: start: 200503, end: 200505

REACTIONS (12)
  - Pancreatic carcinoma [Unknown]
  - Chronic kidney disease [Not Recovered/Not Resolved]
  - Inappropriate schedule of drug administration [Unknown]
  - Diabetic nephropathy [Unknown]
  - Hypertension [Unknown]
  - Rhabdomyolysis [Unknown]
  - Back pain [Not Recovered/Not Resolved]
  - Adverse event [Not Recovered/Not Resolved]
  - Type 1 diabetes mellitus [Unknown]
  - Chest pain [Unknown]
  - Acute kidney injury [Unknown]
  - Nephrotic syndrome [Unknown]

NARRATIVE: CASE EVENT DATE: 200503
